FAERS Safety Report 20953788 (Version 2)
Quarter: 2022Q2

REPORT INFORMATION
  Report Type: Report from Study
  Country: US (occurrence: US)
  Receive Date: 20220614
  Receipt Date: 20220624
  Transmission Date: 20220720
  Serious: Yes (Other)
  Sender: FDA-Public Use
  Company Number: US-JAZZ-2022-US-018985

PATIENT
  Sex: Female

DRUGS (28)
  1. SUNOSI [Suspect]
     Active Substance: SOLRIAMFETOL
     Indication: Product used for unknown indication
     Dosage: 150 MILLIGRAM
     Dates: start: 20220301
  2. XYWAV [Suspect]
     Active Substance: CALCIUM OXYBATE\MAGNESIUM OXYBATE\POTASSIUM OXYBATE\SODIUM OXYBATE
     Indication: Hypersomnia
     Dosage: DRUG NOT ADMINISTERED
  3. ASPIRIN [Concomitant]
     Active Substance: ASPIRIN
     Dosage: UNK
     Dates: start: 20180601
  4. AZELASTINE [Concomitant]
     Active Substance: AZELASTINE
     Dosage: 0.1% (137 MCGA) SPRY
     Dates: start: 20210601
  5. BENAZEPRIL HYDROCHLORIDE [Concomitant]
     Active Substance: BENAZEPRIL HYDROCHLORIDE
     Dosage: UNK
     Dates: start: 20120601
  6. FLUTICASONE PROPIONATE [Concomitant]
     Active Substance: FLUTICASONE PROPIONATE
     Dosage: UNK
     Dates: start: 20210601
  7. GABAPENTIN [Concomitant]
     Active Substance: GABAPENTIN
     Dosage: UNK
     Dates: start: 20150101
  8. HYDROCHLOROTHIAZIDE [Concomitant]
     Active Substance: HYDROCHLOROTHIAZIDE
     Dosage: 0000
     Dates: start: 20000101
  9. ACETAMINOPHEN\HYDROCODONE [Concomitant]
     Active Substance: ACETAMINOPHEN\HYDROCODONE
     Dosage: 0000
     Dates: start: 20150101
  10. KRILL OIL [Concomitant]
     Active Substance: DIETARY SUPPLEMENT\KRILL OIL
     Dosage: SOFT GEL
     Dates: start: 20180101
  11. NARCAN [Concomitant]
     Active Substance: NALOXONE HYDROCHLORIDE
     Dosage: UNK
     Dates: start: 20190101
  12. NITROSTAT [Concomitant]
     Active Substance: NITROGLYCERIN
     Dosage: UNK
     Dates: start: 20120101
  13. PANTOPRAZOLE SODIUM [Concomitant]
     Active Substance: PANTOPRAZOLE SODIUM
     Dosage: UNK
     Dates: start: 20070101
  14. PRAVASTATIN SODIUM [Concomitant]
     Active Substance: PRAVASTATIN SODIUM
     Dosage: UNK
     Dates: start: 20170101
  15. VITAMIN D2 [Concomitant]
     Active Substance: ERGOCALCIFEROL
     Dosage: 1.25MG(50,000 UNIT)
     Dates: start: 20200101
  16. PROAIR HFA [Concomitant]
     Active Substance: ALBUTEROL SULFATE
     Dosage: UNK
     Dates: start: 20190101
  17. CLOBETASOL [Concomitant]
     Active Substance: CLOBETASOL
     Dosage: UNK
     Dates: start: 20220301
  18. DICLOFENAC SODIUM [Concomitant]
     Active Substance: DICLOFENAC SODIUM
     Dosage: UNK
     Dates: start: 20220301
  19. ATHLETE^S FOOT [TOLNAFTATE] [Concomitant]
     Dosage: UNK
     Dates: start: 20120601
  20. MICONAZOLE [Concomitant]
     Active Substance: MICONAZOLE
     Dosage: 0.05% CREAM
     Dates: start: 20120101
  21. CETYLPYRIDINIUM CHLORIDE [Concomitant]
     Active Substance: CETYLPYRIDINIUM CHLORIDE
     Dosage: UNK
     Dates: start: 20160601
  22. POLARAX [Concomitant]
     Dosage: UNK
     Dates: start: 20220301
  23. SALINE NASAL MIST [Concomitant]
     Dosage: UNK
     Dates: start: 20210601
  24. BUTRANS [Concomitant]
     Active Substance: BUPRENORPHINE
  25. DICLOFENAC [Concomitant]
     Active Substance: DICLOFENAC
  26. FLUTICASONE [Concomitant]
     Active Substance: FLUTICASONE
  27. HYDROCODONE [Concomitant]
     Active Substance: HYDROCODONE
  28. CANNABIDIOL [Concomitant]
     Active Substance: CANNABIDIOL

REACTIONS (6)
  - Condition aggravated [Unknown]
  - Fall [Unknown]
  - Epistaxis [Unknown]
  - Nasal congestion [Unknown]
  - Secretion discharge [Unknown]
  - Throat clearing [Unknown]
